FAERS Safety Report 15684447 (Version 1)
Quarter: 2018Q4

REPORT INFORMATION
  Report Type: Spontaneous
  Country: US (occurrence: US)
  Receive Date: 20181204
  Receipt Date: 20181204
  Transmission Date: 20190205
  Serious: No
  Sender: FDA-Public Use
  Company Number: US-GLAXOSMITHKLINE-US2018211083

PATIENT
  Sex: Female

DRUGS (2)
  1. ADVAIR DISKUS [Suspect]
     Active Substance: FLUTICASONE PROPIONATE\SALMETEROL XINAFOATE
     Dosage: 1 PUFF(S), 1D (250/50)
     Route: 055
     Dates: start: 20180724
  2. ADVAIR DISKUS [Suspect]
     Active Substance: FLUTICASONE PROPIONATE\SALMETEROL XINAFOATE
     Indication: ASTHMA
     Dosage: 1 PUFF(S), 1D (100/50)
     Route: 055

REACTIONS (5)
  - Sleep disorder [Not Recovered/Not Resolved]
  - Underdose [Unknown]
  - Pharyngeal disorder [Unknown]
  - Condition aggravated [Not Recovered/Not Resolved]
  - Sinus disorder [Unknown]
